FAERS Safety Report 24846310 (Version 5)
Quarter: 2025Q4

REPORT INFORMATION
  Report Type: Other
  Country: US (occurrence: US)
  Receive Date: 20250115
  Receipt Date: 20251118
  Transmission Date: 20260118
  Serious: No
  Sender: TRAVERE THERAPEUTICS
  Company Number: US-TRAVERE-2024TVT01280

PATIENT
  Age: 29 Year
  Sex: Female

DRUGS (2)
  1. FILSPARI [Suspect]
     Active Substance: SPARSENTAN
     Indication: IgA nephropathy
     Dosage: LOT NUMBER: 1976070, EXPIRY DATE: 31-AUG-2025
     Route: 048
     Dates: start: 202411
  2. FILSPARI [Suspect]
     Active Substance: SPARSENTAN
     Route: 048

REACTIONS (14)
  - Respiratory tract infection [Unknown]
  - Pruritus [Unknown]
  - Fatigue [Unknown]
  - Cough [Unknown]
  - Vomiting [Unknown]
  - Haematuria [None]
  - Blepharospasm [Unknown]
  - Headache [None]
  - Neck pain [Unknown]
  - Malaise [Unknown]
  - Dizziness [Recovering/Resolving]
  - Hypotension [Unknown]
  - Contusion [Unknown]
  - Condition aggravated [Unknown]

NARRATIVE: CASE EVENT DATE: 20241210
